FAERS Safety Report 11126404 (Version 2)
Quarter: 2015Q2

REPORT INFORMATION
  Report Type: Spontaneous
  Country: US (occurrence: US)
  Receive Date: 20150520
  Receipt Date: 20150624
  Transmission Date: 20150821
  Serious: Yes (Other)
  Sender: FDA-Public Use
  Company Number: US-ASTELLAS-2015US011944

PATIENT
  Sex: Male

DRUGS (2)
  1. VESICARE [Suspect]
     Active Substance: SOLIFENACIN SUCCINATE
     Indication: MICTURITION URGENCY
     Route: 048
     Dates: start: 201502, end: 2015
  2. VESICARE [Suspect]
     Active Substance: SOLIFENACIN SUCCINATE
     Indication: MIXED INCONTINENCE

REACTIONS (3)
  - Dehydration [Unknown]
  - Adverse event [Unknown]
  - Urinary retention [Unknown]
